FAERS Safety Report 6618213-7 (Version None)
Quarter: 2010Q1

REPORT INFORMATION
  Report Type: 
  Country: None (occurrence: None)
  Receive Date: 20100308
  Receipt Date: 20100224
  Transmission Date: 20100710
  Serious: Yes (Death)
  Sender: FDA-Public Use
  Company Number: GB-PFIZER INC-2010024489

PATIENT
  Age: 52 Year
  Sex: Female

DRUGS (1)
  1. SUNITINIB MALATE [Suspect]
     Indication: METASTATIC RENAL CELL CARCINOMA
     Dosage: 12.5 MG, 1X/DAY, 28 DAYS ON 14 DAYS OFF
     Route: 048
     Dates: start: 20060725, end: 20060816

REACTIONS (1)
  - DEATH [None]
